FAERS Safety Report 5273590-7 (Version None)
Quarter: 2007Q1

REPORT INFORMATION
  Report Type: 
  Country: None (occurrence: None)
  Receive Date: 20070321
  Receipt Date: 20070321
  Transmission Date: 20070707
  Serious: Yes (Other)
  Sender: FDA-Public Use
  Company Number: None

PATIENT
  Age: 30 Year
  Sex: Female
  Weight: 77.1115 kg

DRUGS (1)
  1. EFFEXOR XR [Suspect]
     Indication: GENERALISED ANXIETY DISORDER
     Dosage: 75 MG SID  PO
     Route: 048
     Dates: start: 20040210, end: 20070318

REACTIONS (1)
  - ALCOHOLISM [None]
